FAERS Safety Report 9347333 (Version 1)
Quarter: 2013Q2

REPORT INFORMATION
  Report Type: Spontaneous
  Country: FR (occurrence: FR)
  Receive Date: 20130613
  Receipt Date: 20130613
  Transmission Date: 20140414
  Serious: Yes (Hospitalization)
  Sender: FDA-Public Use
  Company Number: FR-PFIZER INC-2013172079

PATIENT
  Age: 73 Year
  Sex: Female

DRUGS (16)
  1. DALACINE [Suspect]
     Indication: DEVICE RELATED INFECTION
     Dosage: 2400 MG, 1X/DAY
     Route: 048
     Dates: start: 20130319, end: 20130319
  2. RIMACTAN [Suspect]
     Indication: DEVICE RELATED INFECTION
     Dosage: 1200 MG, 1X/DAY
     Route: 048
     Dates: start: 20130319, end: 20130319
  3. PYOSTACINE [Suspect]
     Indication: DEVICE RELATED INFECTION
     Dosage: 1500 MG, 1X/DAY
     Route: 048
     Dates: start: 20130322, end: 20130325
  4. LYRICA [Concomitant]
  5. TAHOR [Concomitant]
  6. IMOVANE [Concomitant]
  7. KARDEGIC [Concomitant]
  8. BISOPROLOL [Concomitant]
  9. CORTANCYL [Concomitant]
  10. OXYNORM [Concomitant]
  11. DOLIPRANE [Concomitant]
  12. LEVOTHYROX [Concomitant]
  13. INEXIUM [Concomitant]
  14. SERESTA [Concomitant]
  15. TIENAM [Concomitant]
     Indication: DEVICE RELATED INFECTION
     Dosage: UNK
     Dates: start: 20130307, end: 20130311
  16. VANCOMYCIN [Concomitant]
     Indication: DEVICE RELATED INFECTION
     Dosage: UNK
     Dates: start: 20130307, end: 20130311

REACTIONS (3)
  - Generalised erythema [Recovered/Resolved]
  - Purpura [Recovered/Resolved]
  - Eosinophilia [Recovered/Resolved]
